FAERS Safety Report 25350553 (Version 2)
Quarter: 2025Q2

REPORT INFORMATION
  Report Type: Report from Study
  Country: TH (occurrence: TH)
  Receive Date: 20250523
  Receipt Date: 20250630
  Transmission Date: 20250717
  Serious: Yes (Other)
  Sender: EMD SERONO INC
  Company Number: TH-Merck Healthcare KGaA-2025025569

PATIENT
  Sex: Female

DRUGS (1)
  1. SAIZEN [Suspect]
     Active Substance: SOMATROPIN
     Indication: Growth hormone deficiency
     Dosage: 0.4 MG X 7 DAYS/WEEK
     Dates: start: 20250219

REACTIONS (2)
  - Systemic lupus erythematosus [Not Recovered/Not Resolved]
  - Injection site pain [Unknown]
